FAERS Safety Report 10921260 (Version 1)
Quarter: 2015Q1

REPORT INFORMATION
  Report Type: Spontaneous
  Country: FR (occurrence: FR)
  Receive Date: 20150317
  Receipt Date: 20150317
  Transmission Date: 20150721
  Serious: Yes (Death)
  Sender: FDA-Public Use
  Company Number: FR-SA-2015SA031203

PATIENT
  Age: 60 Year
  Sex: Male

DRUGS (2)
  1. KARDEGIC [Suspect]
     Active Substance: ASPIRIN LYSINE
     Route: 048
     Dates: end: 20150216
  2. PLAVIX [Interacting]
     Active Substance: CLOPIDOGREL BISULFATE
     Route: 048
     Dates: end: 20150216

REACTIONS (7)
  - Anaemia [Fatal]
  - Cerebral haemorrhage [Fatal]
  - Haematuria [Fatal]
  - Gastric ulcer haemorrhage [Fatal]
  - Troponin increased [Fatal]
  - Drug interaction [Unknown]
  - Rectal haemorrhage [Fatal]

NARRATIVE: CASE EVENT DATE: 20150215
